FAERS Safety Report 15253506 (Version 4)
Quarter: 2018Q4

REPORT INFORMATION
  Report Type: Report from Study
  Country: US (occurrence: US)
  Receive Date: 20180808
  Receipt Date: 20181031
  Transmission Date: 20190204
  Serious: Yes (Other)
  Sender: FDA-Public Use
  Company Number: US-BEH-2018093489

PATIENT
  Sex: Male

DRUGS (1)
  1. PRIVIGEN [Suspect]
     Active Substance: HUMAN IMMUNOGLOBULIN G
     Indication: CHRONIC INFLAMMATORY DEMYELINATING POLYRADICULONEUROPATHY
     Dosage: 3 DAYS QMT
     Route: 042
     Dates: start: 201802, end: 201808

REACTIONS (30)
  - Amnesia [Unknown]
  - Musculoskeletal stiffness [Not Recovered/Not Resolved]
  - Unevaluable event [Unknown]
  - Vein collapse [Unknown]
  - Dysarthria [Unknown]
  - Arthralgia [Unknown]
  - Dysphemia [Not Recovered/Not Resolved]
  - Hyperproteinaemia [Unknown]
  - Meningitis aseptic [Unknown]
  - Musculoskeletal pain [Not Recovered/Not Resolved]
  - Autonomic nervous system imbalance [Unknown]
  - Brain injury [Unknown]
  - Treponema test positive [Unknown]
  - Speech disorder [Unknown]
  - Haemolysis [Unknown]
  - Lyme disease [Unknown]
  - Tinnitus [Unknown]
  - Central nervous system lesion [Unknown]
  - Encephalopathy [Unknown]
  - Cerebrovascular accident [Unknown]
  - Headache [Unknown]
  - Vasculitis [Unknown]
  - Skin discolouration [Unknown]
  - Cardiovascular disorder [Unknown]
  - Pain in extremity [Unknown]
  - Hypoaesthesia [Unknown]
  - Meningitis bacterial [Unknown]
  - Hemiparesis [Not Recovered/Not Resolved]
  - Paraesthesia [Unknown]
  - Sleep apnoea syndrome [Unknown]

NARRATIVE: CASE EVENT DATE: 2018
